FAERS Safety Report 6556474-3 (Version None)
Quarter: 2010Q1

REPORT INFORMATION
  Report Type: 
  Country: None (occurrence: None)
  Receive Date: 20100128
  Receipt Date: 20100119
  Transmission Date: 20100710
  Serious: Yes (Death)
  Sender: FDA-Public Use
  Company Number: US-MERCK-1001USA00502

PATIENT
  Age: 60 Year
  Sex: Male
  Weight: 75 kg

DRUGS (2)
  1. JANUMET [Suspect]
     Route: 048
     Dates: start: 20080125
  2. JANUVIA [Suspect]
     Route: 065
     Dates: end: 20090707

REACTIONS (2)
  - DEATH [None]
  - PLATELET COUNT DECREASED [None]
